FAERS Safety Report 16340806 (Version 3)
Quarter: 2020Q3

REPORT INFORMATION
  Report Type: Spontaneous
  Country: US (occurrence: US)
  Receive Date: 20190522
  Receipt Date: 20200813
  Transmission Date: 20201102
  Serious: Yes (Other)
  Sender: FDA-Public Use
  Company Number: US-GILEAD-2019-0408259

PATIENT
  Age: 49 Year
  Sex: Male
  Weight: 74.83 kg

DRUGS (21)
  1. PHOSPHORUS [Concomitant]
     Active Substance: PHOSPHORUS
     Indication: OSTEOPOROSIS
     Dosage: UNK
     Dates: start: 201402
  2. K?PHOS [Concomitant]
     Active Substance: POTASSIUM PHOSPHATE, MONOBASIC
     Dosage: 500 MG, BID
     Dates: start: 20160602
  3. TRIUMEQ [Concomitant]
     Active Substance: ABACAVIR SULFATE\DOLUTEGRAVIR SODIUM\LAMIVUDINE
  4. MEGESTROL [Concomitant]
     Active Substance: MEGESTROL
     Dosage: UNK
     Dates: start: 2010, end: 2010
  5. DARUNAVIR [Concomitant]
     Active Substance: DARUNAVIR
     Dosage: UNK
     Dates: start: 20141206, end: 2015
  6. XANAX [Concomitant]
     Active Substance: ALPRAZOLAM
  7. NORVIR [Concomitant]
     Active Substance: RITONAVIR
     Dosage: UNK
     Dates: start: 20150122, end: 20150122
  8. NICOTINE. [Concomitant]
     Active Substance: NICOTINE
  9. BUPRION [Concomitant]
     Active Substance: BUPROPION HYDROCHLORIDE
  10. LISINOPRIL. [Concomitant]
     Active Substance: LISINOPRIL
  11. TRUVADA [Suspect]
     Active Substance: EMTRICITABINE\TENOFOVIR DISOPROXIL FUMARATE
     Indication: HIV INFECTION
     Dosage: UNK
     Route: 048
     Dates: start: 200610, end: 201403
  12. EPZICOM [Concomitant]
     Active Substance: ABACAVIR SULFATE\LAMIVUDINE
  13. CLOTRIMAZOLE. [Concomitant]
     Active Substance: CLOTRIMAZOLE
     Dosage: UNK
     Dates: start: 2010, end: 201005
  14. FLEXERIL [CEFIXIME] [Concomitant]
     Active Substance: CEFIXIME
  15. LOPERAMIDE [Concomitant]
     Active Substance: LOPERAMIDE
     Dosage: UNK
     Dates: start: 2010
  16. LOPID [Concomitant]
     Active Substance: GEMFIBROZIL
  17. K?PHOS [Concomitant]
     Active Substance: POTASSIUM PHOSPHATE, MONOBASIC
     Dosage: UNK
     Dates: start: 201402, end: 20180722
  18. KALETRA [Concomitant]
     Active Substance: LOPINAVIR\RITONAVIR
  19. ZIAGEN [Concomitant]
     Active Substance: ABACAVIR SULFATE
  20. WELLBUTRIN [Concomitant]
     Active Substance: BUPROPION HYDROCHLORIDE
  21. PREZISTA [Concomitant]
     Active Substance: DARUNAVIR ETHANOLATE

REACTIONS (22)
  - Osteoporosis [Not Recovered/Not Resolved]
  - Emotional distress [Not Recovered/Not Resolved]
  - Osteomalacia [Not Recovered/Not Resolved]
  - Ulna fracture [Not Recovered/Not Resolved]
  - General physical health deterioration [Unknown]
  - Pain [Not Recovered/Not Resolved]
  - Bone loss [Unknown]
  - Back pain [Unknown]
  - Injury [Unknown]
  - Economic problem [Not Recovered/Not Resolved]
  - Anxiety [Not Recovered/Not Resolved]
  - Spinal osteoarthritis [Unknown]
  - Stress fracture [Recovered/Resolved]
  - Rib fracture [Recovered/Resolved]
  - Mobility decreased [Unknown]
  - Anhedonia [Not Recovered/Not Resolved]
  - Foot fracture [Unknown]
  - Impaired work ability [Not Recovered/Not Resolved]
  - Upper limb fracture [Unknown]
  - Compression fracture [Not Recovered/Not Resolved]
  - Quality of life decreased [Not Recovered/Not Resolved]
  - Pain in extremity [Unknown]

NARRATIVE: CASE EVENT DATE: 2012
